FAERS Safety Report 23461149 (Version 1)
Quarter: 2024Q1

REPORT INFORMATION
  Report Type: Spontaneous
  Country: US (occurrence: None)
  Receive Date: 20240130
  Receipt Date: 20240130
  Transmission Date: 20240410
  Serious: Yes (Other)
  Sender: FDA-Public Use
  Company Number: None

PATIENT
  Age: 62 Year
  Sex: Female
  Weight: 50.85 kg

DRUGS (11)
  1. AZITHROMYCIN [Suspect]
     Active Substance: AZITHROMYCIN
     Indication: Sinusitis
     Dosage: 250 TABLETS  2 TABS FIRST DAY/  ORAL
     Route: 048
  2. amloddipine [Concomitant]
  3. albuteral sulfate simvestatin one aspirin daily [Concomitant]
  4. hearing aids [Concomitant]
  5. VITAMIN D [Concomitant]
     Active Substance: VITAMIN D NOS
  6. VITAMINS [Concomitant]
     Active Substance: VITAMINS
  7. aspirin daily [Concomitant]
  8. BREWERS YEAST [Concomitant]
     Active Substance: SACCHAROMYCES CEREVISIAE
  9. AMLODIPINE [Concomitant]
     Active Substance: AMLODIPINE BESYLATE
  10. SIMVASTATIN [Concomitant]
     Active Substance: SIMVASTATIN
  11. ALBUTEROL SULFATE [Concomitant]
     Active Substance: ALBUTEROL SULFATE

REACTIONS (4)
  - Diarrhoea [None]
  - Abdominal pain upper [None]
  - Haematochezia [None]
  - Epistaxis [None]

NARRATIVE: CASE EVENT DATE: 20230615
